FAERS Safety Report 12808270 (Version 7)
Quarter: 2017Q2

REPORT INFORMATION
  Report Type: Spontaneous
  Country: US (occurrence: US)
  Receive Date: 20161004
  Receipt Date: 20170405
  Transmission Date: 20170830
  Serious: No
  Sender: FDA-Public Use
  Company Number: US-TEVA-697940USA

PATIENT
  Age: 71 Year
  Sex: Female
  Weight: 59.93 kg

DRUGS (12)
  1. AZILECT [Concomitant]
     Active Substance: RASAGILINE MESYLATE
  2. METRONIDAZOLE. [Suspect]
     Active Substance: METRONIDAZOLE
     Route: 065
  3. BYSTOLIC [Concomitant]
     Active Substance: NEBIVOLOL HYDROCHLORIDE
     Indication: HYPERTENSION
  4. COQ [Concomitant]
  5. AZILECT [Suspect]
     Active Substance: RASAGILINE MESYLATE
     Indication: PARKINSON^S DISEASE
     Dosage: SAMPLE
     Route: 065
     Dates: start: 20160910
  6. IRBESARTAN. [Concomitant]
     Active Substance: IRBESARTAN
     Indication: HYPERTENSION
  7. VASCEPA [Concomitant]
     Active Substance: ICOSAPENT ETHYL
  8. ASPIRIN. [Concomitant]
     Active Substance: ASPIRIN
  9. AZILECT [Suspect]
     Active Substance: RASAGILINE MESYLATE
     Route: 065
     Dates: start: 20160911
  10. CRESTOR [Concomitant]
     Active Substance: ROSUVASTATIN CALCIUM
     Indication: BLOOD CHOLESTEROL INCREASED
  11. PLAVIX [Concomitant]
     Active Substance: CLOPIDOGREL BISULFATE
  12. VITAMIN D3 [Concomitant]
     Active Substance: CHOLECALCIFEROL

REACTIONS (9)
  - Tremor [Not Recovered/Not Resolved]
  - Oral fungal infection [Not Recovered/Not Resolved]
  - Tongue disorder [Not Recovered/Not Resolved]
  - Tongue discolouration [Unknown]
  - Tongue discomfort [Not Recovered/Not Resolved]
  - Drug ineffective [Unknown]
  - Vulvovaginal mycotic infection [Not Recovered/Not Resolved]
  - Tongue discolouration [Not Recovered/Not Resolved]
  - Saliva altered [Not Recovered/Not Resolved]

NARRATIVE: CASE EVENT DATE: 201609
